FAERS Safety Report 14154532 (Version 4)
Quarter: 2019Q1

REPORT INFORMATION
  Report Type: Spontaneous
  Country: CA (occurrence: CA)
  Receive Date: 20171102
  Receipt Date: 20190320
  Transmission Date: 20190417
  Serious: Yes (Hospitalization, Other)
  Sender: FDA-Public Use
  Company Number: CA-ACTELION-A-US2017-161616

PATIENT
  Age: 30 Year
  Sex: Female
  Weight: 54.42 kg

DRUGS (6)
  1. WARFARIN [Concomitant]
     Active Substance: WARFARIN
  2. ZOPLICONE [Concomitant]
     Active Substance: ZOPICLONE
  3. VOLIBRIS [Concomitant]
     Active Substance: AMBRISENTAN
  4. CARIPUL [Suspect]
     Active Substance: EPOPROSTENOL
     Indication: PULMONARY ARTERIAL HYPERTENSION
     Dosage: 2.4 ML HOURLY
     Route: 042
     Dates: start: 20171006
  5. PANTOPRAZOLE [Concomitant]
     Active Substance: PANTOPRAZOLE
  6. ADCIRCA [Suspect]
     Active Substance: TADALAFIL
     Indication: PULMONARY ARTERIAL HYPERTENSION
     Dosage: 40 MG
     Route: 065
     Dates: start: 20170627

REACTIONS (13)
  - Nausea [Not Recovered/Not Resolved]
  - Vomiting [Not Recovered/Not Resolved]
  - Headache [Not Recovered/Not Resolved]
  - Skin discolouration [Not Recovered/Not Resolved]
  - International normalised ratio decreased [Not Recovered/Not Resolved]
  - Flushing [Not Recovered/Not Resolved]
  - Swelling face [Not Recovered/Not Resolved]
  - Abdominal pain upper [Not Recovered/Not Resolved]
  - Lip erythema [Not Recovered/Not Resolved]
  - International normalised ratio increased [Not Recovered/Not Resolved]
  - Dizziness [Not Recovered/Not Resolved]
  - Device infusion issue [Not Recovered/Not Resolved]
  - Abdominal pain [Not Recovered/Not Resolved]

NARRATIVE: CASE EVENT DATE: 20171021
